FAERS Safety Report 16426317 (Version 2)
Quarter: 2019Q2

REPORT INFORMATION
  Report Type: Spontaneous
  Country: CO (occurrence: CO)
  Receive Date: 20190613
  Receipt Date: 20190617
  Transmission Date: 20190711
  Serious: Yes (Other)
  Sender: FDA-Public Use
  Company Number: CO-009507513-1906COL004350

PATIENT
  Age: 36 Year
  Sex: Female

DRUGS (5)
  1. ESTROGEL [Suspect]
     Active Substance: ESTRADIOL
     Indication: HORMONE THERAPY
     Dosage: UNK
  2. UTROGESTAN [Suspect]
     Active Substance: PROGESTERONE
     Indication: HORMONE THERAPY
     Dosage: UNK
     Route: 048
  3. GONADOTROPIN, CHORIONIC [Suspect]
     Active Substance: CHORIOGONADOTROPIN ALFA
     Indication: IN VITRO FERTILISATION
     Dosage: UNK
  4. PROGESTERONE. [Suspect]
     Active Substance: PROGESTERONE
     Indication: HORMONE THERAPY
     Dosage: UNK
     Route: 042
  5. PROGYNOVA [Suspect]
     Active Substance: ESTRADIOL VALERATE
     Indication: OVULATION INDUCTION
     Dosage: UNK
     Route: 048

REACTIONS (4)
  - Ovarian hyperstimulation syndrome [Unknown]
  - Acute kidney injury [Recovered/Resolved]
  - Haemorrhagic ovarian cyst [Unknown]
  - Maternal exposure before pregnancy [Unknown]
